FAERS Safety Report 5722249-8 (Version None)
Quarter: 2008Q2

REPORT INFORMATION
  Report Type: 
  Country: None (occurrence: None)
  Receive Date: 20080429
  Receipt Date: 20080414
  Transmission Date: 20081010
  Serious: Yes (Death, Hospitalization, Other)
  Sender: FDA-Public Use
  Company Number: CH-GENENTECH-232512

PATIENT
  Sex: Male

DRUGS (3)
  1. EFALIZUMAB [Suspect]
     Indication: PSORIASIS
     Dosage: 100 MG/ML, 1/WEEK
     Route: 058
     Dates: start: 20060926
  2. DICLOFENAC SODIUM [Concomitant]
     Indication: DRUG USE FOR UNKNOWN INDICATION
  3. CARBAMAZEPINE [Concomitant]
     Indication: DRUG USE FOR UNKNOWN INDICATION
     Dosage: 200 MG, QD
     Dates: start: 20060701

REACTIONS (6)
  - ATRIAL FIBRILLATION [None]
  - HEPATIC ENZYME INCREASED [None]
  - LEUKOCYTOSIS [None]
  - MENINGITIS ASEPTIC [None]
  - SEPTIC SHOCK [None]
  - SYSTEMIC INFLAMMATORY RESPONSE SYNDROME [None]
